FAERS Safety Report 7800090-X (Version None)
Quarter: 2011Q4

REPORT INFORMATION
  Report Type: 
  Country: None (occurrence: None)
  Receive Date: 20111006
  Receipt Date: 20110927
  Transmission Date: 20120403
  Serious: Yes (Death, Hospitalization)
  Sender: FDA-Public Use
  Company Number: US-JNJFOC-20110803222

PATIENT
  Sex: Female
  Weight: 46.27 kg

DRUGS (8)
  1. PREDNISONE [Concomitant]
  2. ESTROGENIC SUBSTANCE [Concomitant]
  3. DILAUDID [Concomitant]
  4. STELARA [Suspect]
     Route: 058
     Dates: start: 20100106
  5. PERCOCET [Concomitant]
     Indication: PAIN
  6. STELARA [Suspect]
     Indication: PSORIASIS
     Route: 058
     Dates: start: 20110405
  7. PHENERGAN HCL [Concomitant]
     Indication: NAUSEA
  8. AZATHIOPRINE [Concomitant]

REACTIONS (7)
  - WEIGHT DECREASED [None]
  - NO THERAPEUTIC RESPONSE [None]
  - INTESTINAL ISCHAEMIA [None]
  - CROHN'S DISEASE [None]
  - GASTROINTESTINAL NECROSIS [None]
  - LACTIC ACIDOSIS [None]
  - MALNUTRITION [None]
